FAERS Safety Report 8920538 (Version 1)
Quarter: 2012Q4

REPORT INFORMATION
  Report Type: 
  Country: JP (occurrence: JP)
  Receive Date: 20121122
  Receipt Date: 20121122
  Transmission Date: 20130627
  Serious: Yes (Hospitalization, Disabling)
  Sender: FDA-Public Use
  Company Number: JP-SP-2012-10981

PATIENT
  Age: 80 Year
  Sex: Male

DRUGS (1)
  1. IMMUCYST [Suspect]
     Indication: BLADDER CANCER
     Route: 043
     Dates: start: 201009

REACTIONS (4)
  - Epididymitis [Unknown]
  - Pain [Unknown]
  - Scrotal swelling [Unknown]
  - Laceration [Unknown]
